FAERS Safety Report 4456592-X (Version None)
Quarter: 2004Q3

REPORT INFORMATION
  Report Type: 
  Country: None (occurrence: None)
  Receive Date: 20040921
  Receipt Date: 20040903
  Transmission Date: 20050211
  Serious: Yes (Death)
  Sender: FDA-Public Use
  Company Number: 2004-118251-NL

PATIENT
  Sex: Female

DRUGS (1)
  1. REMERON [Suspect]

REACTIONS (1)
  - DRUG TOXICITY [None]
